FAERS Safety Report 5144568-9 (Version None)
Quarter: 2006Q4

REPORT INFORMATION
  Report Type: 
  Country: None (occurrence: None)
  Receive Date: 20061031
  Receipt Date: 20061018
  Transmission Date: 20070319
  Serious: Yes (Hospitalization)
  Sender: FDA-Public Use
  Company Number: 2006123875

PATIENT
  Age: 15 Year
  Sex: Female

DRUGS (2)
  1. SOLU-MEDRONE [Suspect]
     Indication: MULTIPLE SCLEROSIS
     Dosage: 1 GRAM, INTRAVENOUS
     Route: 042
     Dates: start: 20060704
  2. INTERFERON BETA                      (INTERFERON BETA) [Concomitant]

REACTIONS (16)
  - ABDOMINAL PAIN UPPER [None]
  - ANXIETY [None]
  - APNOEA [None]
  - ASTHENIA [None]
  - BACK PAIN [None]
  - BALANCE DISORDER [None]
  - BRADYCARDIA [None]
  - CHEST PAIN [None]
  - COMMUNICATION DISORDER [None]
  - HEART RATE DECREASED [None]
  - HYPERVENTILATION [None]
  - JOINT RANGE OF MOTION DECREASED [None]
  - MULTIPLE SCLEROSIS RELAPSE [None]
  - OXYGEN SATURATION DECREASED [None]
  - SOMATOFORM DISORDER [None]
  - TACHYCARDIA [None]
